FAERS Safety Report 8110935-4 (Version None)
Quarter: 2012Q1

REPORT INFORMATION
  Report Type: 
  Country: None (occurrence: None)
  Receive Date: 20120203
  Receipt Date: 20110919
  Transmission Date: 20120608
  Serious: Yes (Other)
  Sender: FDA-Public Use
  Company Number: US-GLAXOSMITHKLINE-A0884280A

PATIENT
  Age: 42 Year
  Sex: Female

DRUGS (2)
  1. LAMICTAL [Suspect]
     Indication: PRODUCT USED FOR UNKNOWN INDICATION
     Route: 048
     Dates: start: 20080129, end: 20080214
  2. ESTROGEN + PROGESTERONE [Concomitant]

REACTIONS (4)
  - HYPERSENSITIVITY [None]
  - DRUG ERUPTION [None]
  - LEUKOPENIA [None]
  - STEVENS-JOHNSON SYNDROME [None]
